FAERS Safety Report 8545834-7 (Version None)
Quarter: 2012Q3

REPORT INFORMATION
  Report Type: 
  Country: None (occurrence: None)
  Receive Date: 20120727
  Receipt Date: 20120530
  Transmission Date: 20120928
  Serious: No
  Sender: FDA-Public Use
  Company Number: US-ASTRAZENECA-2011SE68585

PATIENT
  Age: 41 Year
  Sex: Male

DRUGS (3)
  1. SEROQUEL [Suspect]
     Route: 048
  2. SEROQUEL [Suspect]
     Route: 048
  3. SEROQUEL [Suspect]
     Route: 048

REACTIONS (9)
  - INFLUENZA LIKE ILLNESS [None]
  - DRUG DOSE OMISSION [None]
  - BIPOLAR DISORDER [None]
  - MALAISE [None]
  - HYPERHIDROSIS [None]
  - INSOMNIA [None]
  - CHILLS [None]
  - DRUG WITHDRAWAL SYNDROME [None]
  - DIARRHOEA [None]
